FAERS Safety Report 17288428 (Version 1)
Quarter: 2020Q1

REPORT INFORMATION
  Report Type: Spontaneous
  Country: ES (occurrence: ES)
  Receive Date: 20200120
  Receipt Date: 20200120
  Transmission Date: 20200409
  Serious: Yes (Life-Threatening)
  Sender: FDA-Public Use
  Company Number: ES-ASTRAZENECA-2020SE06149

PATIENT
  Age: 59 Year
  Sex: Female
  Weight: 70 kg

DRUGS (5)
  1. LANTUS SOLOSTAR [Concomitant]
     Active Substance: INSULIN GLARGINE
     Indication: TYPE 1 DIABETES MELLITUS
     Dosage: 0 IU AT DINNER, 33 IU AT LUNCH, 0 IU AT BREAKFAST
     Dates: start: 20170405, end: 20191125
  2. TRINOMIA [Concomitant]
     Indication: PROPHYLAXIS
     Dosage: 1 CAPSULE EVERY DAY CHRONIC
     Dates: start: 20191003
  3. EDISTRIDE [Suspect]
     Active Substance: DAPAGLIFLOZIN
     Indication: TYPE 1 DIABETES MELLITUS
     Route: 048
     Dates: start: 20191125, end: 20191214
  4. APIDRA SOLOSTAR [Concomitant]
     Active Substance: INSULIN GLULISINE
     Indication: TYPE 1 DIABETES MELLITUS
     Dosage: 6 IU AT DINNER, 8 IU AT LUNCH, 6 IU AT BREAKFAST
     Dates: start: 20170221
  5. TRESIBA [Concomitant]
     Active Substance: INSULIN DEGLUDEC
     Indication: TYPE 1 DIABETES MELLITUS
     Dosage: 50 IU AT BREAKFAST
     Dates: start: 20191125

REACTIONS (2)
  - Hypoglycaemia [Recovered/Resolved]
  - Diabetic ketoacidosis [Recovered/Resolved]

NARRATIVE: CASE EVENT DATE: 20191214
